FAERS Safety Report 13687967 (Version 1)
Quarter: 2017Q2

REPORT INFORMATION
  Report Type: Spontaneous
  Country: US (occurrence: US)
  Receive Date: 20170626
  Receipt Date: 20170626
  Transmission Date: 20170830
  Serious: Yes (Hospitalization, Other)
  Sender: FDA-Public Use
  Company Number: US-ALVOGEN-2017-ALVOGEN-092466

PATIENT
  Age: 65 Year
  Sex: Female

DRUGS (3)
  1. PYRIDOSTIGMINE [Suspect]
     Active Substance: PYRIDOSTIGMINE
     Indication: MYASTHENIA GRAVIS
     Route: 048
  2. PYRIDOSTIGMINE [Suspect]
     Active Substance: PYRIDOSTIGMINE
     Indication: MYASTHENIA GRAVIS
     Route: 048
  3. METHYLPREDNISOLONE. [Concomitant]
     Active Substance: METHYLPREDNISOLONE
     Indication: MYASTHENIA GRAVIS
     Route: 042

REACTIONS (3)
  - Cardiac arrest [Recovered/Resolved]
  - Sinoatrial block [Recovered/Resolved]
  - Bradycardia [Recovered/Resolved]
